FAERS Safety Report 15150524 (Version 1)
Quarter: 2018Q3

REPORT INFORMATION
  Report Type: Spontaneous
  Country: ES (occurrence: ES)
  Receive Date: 20180716
  Receipt Date: 20180716
  Transmission Date: 20181010
  Serious: Yes (Hospitalization)
  Sender: FDA-Public Use
  Company Number: ES-ANIPHARMA-2018-ES-000069

PATIENT
  Age: 82 Year
  Sex: Female

DRUGS (1)
  1. SULFAMETHOXAZOLE + TRIMETHOPRIM (NON?SPECIFIC) [Suspect]
     Active Substance: SULFAMETHOXAZOLE\TRIMETHOPRIM

REACTIONS (2)
  - Toxic epidermal necrolysis [Recovered/Resolved]
  - Acute generalised exanthematous pustulosis [Recovered/Resolved]
